FAERS Safety Report 13330875 (Version 1)
Quarter: 2017Q1

REPORT INFORMATION
  Report Type: Spontaneous
  Country: US (occurrence: US)
  Receive Date: 20170313
  Receipt Date: 20170313
  Transmission Date: 20170428
  Serious: No
  Sender: FDA-Public Use
  Company Number: US-PFIZER INC-2017100300

PATIENT
  Age: 52 Year
  Sex: Female
  Weight: 56.69 kg

DRUGS (5)
  1. TOVIAZ [Suspect]
     Active Substance: FESOTERODINE FUMARATE
     Dosage: UNK
     Route: 048
     Dates: start: 20170224, end: 20170304
  2. TOVIAZ [Suspect]
     Active Substance: FESOTERODINE FUMARATE
     Indication: MICTURITION URGENCY
     Dosage: 4 MG, 1X/DAY
     Route: 048
     Dates: start: 20170206
  3. DIPHENHYDRAMINE. [Concomitant]
     Active Substance: DIPHENHYDRAMINE
     Indication: INSOMNIA
     Dosage: 50 MG, 1X/DAY (BEFORE BED)
     Route: 048
  4. TYLENOL EXTRA STRENGTH [Concomitant]
     Active Substance: ACETAMINOPHEN
     Indication: INSOMNIA
     Dosage: 2 DF, 1X/DAY (BEFORE BED)
     Route: 048
  5. VITAMIN C [Concomitant]
     Active Substance: ASCORBIC ACID
     Indication: SUPPLEMENTATION THERAPY
     Dosage: 500 MG, 1X/DAY; GLUTEN FREE GUMMIES
     Route: 048

REACTIONS (9)
  - Abdominal discomfort [Recovered/Resolved]
  - Dry mouth [Recovering/Resolving]
  - Bladder spasm [Recovering/Resolving]
  - Sleep disorder [Unknown]
  - Nausea [Recovered/Resolved]
  - Drug ineffective [Unknown]
  - Nocturia [Recovered/Resolved]
  - Diarrhoea [Recovered/Resolved]
  - Bronchitis [Recovered/Resolved]

NARRATIVE: CASE EVENT DATE: 2017
